FAERS Safety Report 25108185 (Version 1)
Quarter: 2025Q1

REPORT INFORMATION
  Report Type: Spontaneous
  Country: US (occurrence: US)
  Receive Date: 20250322
  Receipt Date: 20250322
  Transmission Date: 20250408
  Serious: No
  Sender: SANOFI AVENTIS
  Company Number: US-SANOFI-02453451

PATIENT

DRUGS (1)
  1. SARCLISA [Suspect]
     Active Substance: ISATUXIMAB-IRFC

REACTIONS (1)
  - Light chain analysis increased [Unknown]
